FAERS Safety Report 19428306 (Version 7)
Quarter: 2025Q3

REPORT INFORMATION
  Report Type: Spontaneous
  Country: EU (occurrence: EU)
  Receive Date: 20210616
  Receipt Date: 20250710
  Transmission Date: 20251021
  Serious: Yes (Other)
  Sender: CELLTRION
  Company Number: EU-CELLTRION INC.-2021DE008139

PATIENT

DRUGS (12)
  1. TRASTUZUMAB [Suspect]
     Active Substance: TRASTUZUMAB
     Indication: HER2 positive breast cancer
     Route: 065
  2. TRASTUZUMAB [Suspect]
     Active Substance: TRASTUZUMAB
     Route: 065
  3. TRASTUZUMAB [Suspect]
     Active Substance: TRASTUZUMAB
  4. TRASTUZUMAB [Suspect]
     Active Substance: TRASTUZUMAB
  5. TRASTUZUMAB [Suspect]
     Active Substance: TRASTUZUMAB
     Route: 065
  6. TRASTUZUMAB [Suspect]
     Active Substance: TRASTUZUMAB
  7. TRASTUZUMAB [Suspect]
     Active Substance: TRASTUZUMAB
  8. TRASTUZUMAB [Suspect]
     Active Substance: TRASTUZUMAB
     Route: 065
  9. TRASTUZUMAB [Suspect]
     Active Substance: TRASTUZUMAB
     Route: 065
  10. PACLITAXEL [Suspect]
     Active Substance: PACLITAXEL
     Indication: HER2 positive breast cancer
     Dosage: PACLITAXEL 80 MG/M2 WEEKLY
     Route: 065
  11. PACLITAXEL [Suspect]
     Active Substance: PACLITAXEL
  12. PACLITAXEL [Suspect]
     Active Substance: PACLITAXEL
     Dosage: 80 MILLIGRAM/SQ. METER, QWK

REACTIONS (6)
  - Keratitis [Unknown]
  - Neuropathy peripheral [Unknown]
  - Ophthalmic herpes simplex [Unknown]
  - Immune-mediated adverse reaction [Unknown]
  - Corneal disorder [Unknown]
  - Off label use [Unknown]
